FAERS Safety Report 18252896 (Version 2)
Quarter: 2020Q3

REPORT INFORMATION
  Report Type: Other
  Country: US (occurrence: US)
  Receive Date: 20200910
  Receipt Date: 20200916
  Transmission Date: 20201103
  Serious: Yes (Hospitalization, Other)
  Sender: FDA-Public Use
  Company Number: US-ROCHE-2673010

PATIENT
  Age: 76 Year
  Sex: Female
  Weight: 89.89 kg

DRUGS (12)
  1. PREDNISONE. [Suspect]
     Active Substance: PREDNISONE
     Indication: PRODUCT USED FOR UNKNOWN INDICATION
     Route: 048
  2. VITAMIN B COMPLEX [Concomitant]
     Active Substance: CYANOCOBALAMIN\DEXPANTHENOL\NIACINAMIDE\PYRIDOXINE HYDROCHLORIDE\RIBOFLAVIN 5^-PHOSPHATE SODIUM\THIAMINE HYDROCHLORIDE\VITAMIN B COMPLEX
  3. VITAMIN D3 [Concomitant]
     Active Substance: CHOLECALCIFEROL
  4. EPINEPHRINE. [Concomitant]
     Active Substance: EPINEPHRINE
     Indication: RUBBER SENSITIVITY
     Route: 030
  5. XOLAIR [Suspect]
     Active Substance: OMALIZUMAB
     Indication: RUBBER SENSITIVITY
     Route: 058
  6. FLUTICASONE PROPIONATE;SALMETEROL [Concomitant]
     Active Substance: FLUTICASONE PROPIONATE\SALMETEROL XINAFOATE
     Dosage: FORM: 500/50
     Route: 055
  7. FEXOFENADINE [Concomitant]
     Active Substance: FEXOFENADINE HYDROCHLORIDE
     Route: 048
  8. ALLOPURINOL. [Suspect]
     Active Substance: ALLOPURINOL
     Indication: PRODUCT USED FOR UNKNOWN INDICATION
     Route: 065
  9. ZINC. [Concomitant]
     Active Substance: ZINC
     Route: 048
  10. MONTELUKAST [Concomitant]
     Active Substance: MONTELUKAST SODIUM
  11. RANITIDINE. [Concomitant]
     Active Substance: RANITIDINE
  12. ASPIRIN. [Concomitant]
     Active Substance: ASPIRIN
     Route: 048

REACTIONS (12)
  - Pneumonia [Recovered/Resolved]
  - Neuropathy peripheral [Not Recovered/Not Resolved]
  - Blood cholesterol increased [Not Recovered/Not Resolved]
  - VIth nerve paralysis [Unknown]
  - Anaphylactic reaction [Recovered/Resolved]
  - Type 2 diabetes mellitus [Not Recovered/Not Resolved]
  - Stevens-Johnson syndrome [Recovered/Resolved]
  - Spinal fracture [Unknown]
  - Arrhythmia [Unknown]
  - Hypertension [Not Recovered/Not Resolved]
  - Gastrooesophageal reflux disease [Not Recovered/Not Resolved]
  - Osteopenia [Not Recovered/Not Resolved]

NARRATIVE: CASE EVENT DATE: 2009
